FAERS Safety Report 9847194 (Version 1)
Quarter: 2014Q1

REPORT INFORMATION
  Report Type: Spontaneous
  Country: JP (occurrence: JP)
  Receive Date: 20140127
  Receipt Date: 20140127
  Transmission Date: 20141002
  Serious: Yes (Hospitalization, Other)
  Sender: FDA-Public Use
  Company Number: JP-PFIZER INC-2014024824

PATIENT
  Age: 68 Year
  Sex: Male

DRUGS (4)
  1. CHAMPIX [Suspect]
     Dosage: 1 MG DAILY
     Route: 048
     Dates: start: 20140107, end: 20140110
  2. DOXAZOSIN MESILATE [Concomitant]
     Dosage: 2 MG/DAY
     Route: 048
     Dates: start: 201311
  3. REZALTAS [Concomitant]
     Dosage: UNK
     Route: 048
     Dates: start: 201311
  4. FLIVAS [Concomitant]
     Dosage: 25 MG /DAY
     Route: 048
     Dates: start: 201311

REACTIONS (3)
  - Encephalopathy [Not Recovered/Not Resolved]
  - Palpitations [Not Recovered/Not Resolved]
  - Dizziness [Not Recovered/Not Resolved]
